FAERS Safety Report 17493078 (Version 1)
Quarter: 2020Q1

REPORT INFORMATION
  Report Type: Spontaneous
  Country: US (occurrence: US)
  Receive Date: 20200303
  Receipt Date: 20200303
  Transmission Date: 20200409
  Serious: Yes (Death, Other)
  Sender: FDA-Public Use
  Company Number: US-PFIZER INC-2020071181

PATIENT
  Age: 34 Year
  Sex: Male

DRUGS (3)
  1. MORPHINE SULFATE. [Suspect]
     Active Substance: MORPHINE SULFATE
     Dosage: 1.8 MG, DAILY (IT CATHETER AT 75 MCG PER HOUR)
     Route: 037
  2. MORPHINE SULFATE. [Suspect]
     Active Substance: MORPHINE SULFATE
     Dosage: UNK (TWO WEEKS LATER) (AN ADDITIONAL 20 MCG OF MORPHINE BOLUS OVER 10 MINUTES, WITH A MAXIMUM OF 5)
  3. MORPHINE SULFATE. [Suspect]
     Active Substance: MORPHINE SULFATE
     Indication: PAIN
     Dosage: 80 MG, EVERY 4 HRS (VIA PEG)

REACTIONS (2)
  - Overdose [Fatal]
  - Mental status changes [Unknown]
